FAERS Safety Report 8917394 (Version 2)
Quarter: 2013Q1

REPORT INFORMATION
  Report Type: Spontaneous
  Country: US (occurrence: US)
  Receive Date: 20121119
  Receipt Date: 20130111
  Transmission Date: 20140127
  Serious: No
  Sender: FDA-Public Use
  Company Number: US-B.I. PHARMACEUTICALS,INC./RIDGEFIELD-2012-BI-00680BP

PATIENT
  Age: 60 Year
  Sex: Male
  Weight: 111.58 kg

DRUGS (6)
  1. PRADAXA [Suspect]
     Indication: ATRIAL FIBRILLATION
     Dosage: 300 MG
     Route: 048
     Dates: start: 20120112, end: 20120208
  2. PRADAXA [Suspect]
     Indication: PROTEIN C DEFICIENCY
  3. COUMADIN [Concomitant]
     Dosage: 15 MG
     Dates: start: 2004
  4. NEXIUM [Concomitant]
     Dosage: 40 MG
     Dates: start: 2008
  5. FOCALIN XR [Concomitant]
     Dosage: 10 MG
     Dates: start: 2010
  6. CIALIS [Concomitant]
     Dosage: 20 MG
     Dates: start: 2007

REACTIONS (1)
  - Headache [Recovered/Resolved]
